FAERS Safety Report 7448503-X (Version None)
Quarter: 2011Q2

REPORT INFORMATION
  Report Type: 
  Country: None (occurrence: None)
  Receive Date: 20110429
  Receipt Date: 20100421
  Transmission Date: 20111010
  Serious: No
  Sender: FDA-Public Use
  Company Number: US-ASTRAZENECA-2010SE17826

PATIENT
  Sex: Female

DRUGS (1)
  1. NEXIUM [Suspect]
     Indication: DIARRHOEA
     Route: 048
     Dates: start: 20100420

REACTIONS (3)
  - DIARRHOEA [None]
  - ABDOMINAL TENDERNESS [None]
  - ABDOMINAL DISTENSION [None]
